FAERS Safety Report 9450756 (Version 1)
Quarter: 2013Q3

REPORT INFORMATION
  Report Type: Spontaneous
  Country: KR (occurrence: None)
  Receive Date: 20130807
  Receipt Date: 20130807
  Transmission Date: 20140515
  Serious: Yes (Other)
  Sender: FDA-Public Use
  Company Number: SYM-2013-07587

PATIENT
  Age: 67 Year
  Sex: Male

DRUGS (4)
  1. TRAMADOL [Suspect]
     Indication: PAIN
     Dosage: 1 IN 1 HR
  2. PREGABALIN [Suspect]
     Indication: PAIN
  3. OXYCODONE [Suspect]
     Indication: PAIN
  4. FENTANYL [Suspect]
     Indication: PAIN
     Dosage: 1 IN 1 HR

REACTIONS (6)
  - Hyperhidrosis [None]
  - Chills [None]
  - Rhinorrhoea [None]
  - Pain [None]
  - Hyperaesthesia [None]
  - Hyperaesthesia [None]
